FAERS Safety Report 9775679 (Version 1)
Quarter: 2013Q4

REPORT INFORMATION
  Report Type: Spontaneous
  Country: BR (occurrence: BR)
  Receive Date: 20131220
  Receipt Date: 20131220
  Transmission Date: 20140711
  Serious: Yes (Death, Life-Threatening, Hospitalization)
  Sender: FDA-Public Use
  Company Number: BR-B.I. PHARMACEUTICALS,INC./RIDGEFIELD-2013-BI-43127BR

PATIENT
  Age: 88 Year
  Sex: Male
  Weight: 95 kg

DRUGS (6)
  1. MICARDIS HCT [Suspect]
     Indication: HYPERTENSION
     Dosage: 80/12.5 MG
     Route: 048
     Dates: end: 20130805
  2. LYRICA [Concomitant]
     Indication: PAIN
     Dosage: 150 MG
     Route: 048
     Dates: end: 20130805
  3. LASIX [Concomitant]
     Indication: DIURETIC THERAPY
     Route: 048
     Dates: end: 20130805
  4. SERETIDE [Concomitant]
     Indication: BRONCHITIS
     Route: 055
     Dates: start: 1998, end: 20130805
  5. CALCORT [Concomitant]
     Indication: BRONCHITIS
     Dosage: 12 MG
     Route: 048
     Dates: start: 2011, end: 20130805
  6. CELESTAMINE [Concomitant]
     Indication: DYSPNOEA

REACTIONS (8)
  - Septic shock [Fatal]
  - Chronic obstructive pulmonary disease [Fatal]
  - Pulmonary oedema [Fatal]
  - Renal disorder [Fatal]
  - Bronchospasm [Fatal]
  - Blood pressure fluctuation [Fatal]
  - Back pain [Not Recovered/Not Resolved]
  - Back pain [Recovered/Resolved]
